FAERS Safety Report 7333755-7 (Version None)
Quarter: 2011Q1

REPORT INFORMATION
  Report Type: 
  Country: None (occurrence: None)
  Receive Date: 20110306
  Receipt Date: 20110221
  Transmission Date: 20110831
  Serious: Yes (Other)
  Sender: FDA-Public Use
  Company Number: JP-MYLANLABS-2011S1002147

PATIENT
  Age: 45 Year
  Sex: Female

DRUGS (8)
  1. RESTAMIN KOWA /01989101/ [Concomitant]
     Indication: PREMEDICATION
     Route: 048
     Dates: start: 20110121, end: 20110121
  2. CARBOPLATIN [Suspect]
     Route: 041
     Dates: start: 20110214
  3. DECADRON PHOSPHATE [Concomitant]
     Indication: PREMEDICATION
     Route: 041
     Dates: start: 20110121, end: 20110121
  4. GRANISETRON HCL [Concomitant]
     Indication: PREMEDICATION
     Route: 041
     Dates: start: 20110121, end: 20110121
  5. EMEND /01627301/ [Concomitant]
     Indication: PREMEDICATION
     Dates: start: 20110121, end: 20110121
  6. ZANTAC [Concomitant]
     Indication: PREMEDICATION
     Dates: start: 20110121, end: 20110121
  7. CARBOPLATIN [Suspect]
     Indication: OVARIAN CANCER
     Route: 041
     Dates: start: 20110121, end: 20110121
  8. PACLITAXEL [Suspect]
     Indication: OVARIAN CANCER
     Route: 041
     Dates: start: 20110121, end: 20110121

REACTIONS (2)
  - URTICARIA [None]
  - ERYTHEMA MULTIFORME [None]
